FAERS Safety Report 4808564-0 (Version None)
Quarter: 2005Q4

REPORT INFORMATION
  Report Type: 
  Country: None (occurrence: None)
  Receive Date: 20051025
  Receipt Date: 20051019
  Transmission Date: 20060501
  Serious: Yes (Other)
  Sender: FDA-Public Use
  Company Number: BR-GLAXOSMITHKLINE-A0579078A

PATIENT
  Age: 1 Year
  Sex: Male
  Weight: 13 kg

DRUGS (2)
  1. CEFUROXIME AXETIL [Suspect]
     Dosage: 250MG SINGLE DOSE
     Route: 048
     Dates: start: 20051012, end: 20051012
  2. AMOXICILLIN AND CLAVULANATE POTASSIUM [Concomitant]

REACTIONS (3)
  - CRYING [None]
  - NAUSEA [None]
  - VOMITING [None]
